FAERS Safety Report 20822016 (Version 5)
Quarter: 2023Q2

REPORT INFORMATION
  Report Type: Spontaneous
  Country: US (occurrence: US)
  Receive Date: 20220512
  Receipt Date: 20230418
  Transmission Date: 20230722
  Serious: Yes (Other)
  Sender: FDA-Public Use
  Company Number: US-PFIZER INC-202200505436

PATIENT
  Age: 64 Year
  Sex: Female

DRUGS (4)
  1. XELJANZ XR [Suspect]
     Active Substance: TOFACITINIB CITRATE
     Indication: Rheumatoid arthritis
     Dosage: 11 MG, 1X/DAY
     Route: 048
     Dates: start: 202109
  2. IBUPROFEN [Concomitant]
     Active Substance: IBUPROFEN
     Dosage: 2 DF, DAILY (IN THE MORNING)
  3. DICLOFENAC [Concomitant]
     Active Substance: DICLOFENAC
     Dosage: UNK, AS NEEDED
  4. TYLENOL [Concomitant]
     Active Substance: ACETAMINOPHEN
     Dosage: UNK, AS NEEDED

REACTIONS (22)
  - Atypical pneumonia [Recovering/Resolving]
  - Fall [Unknown]
  - Clavicle fracture [Unknown]
  - Product dose omission issue [Unknown]
  - Skin laceration [Unknown]
  - Dysania [Unknown]
  - Upper respiratory tract infection [Recovering/Resolving]
  - Arthralgia [Not Recovered/Not Resolved]
  - Personality disorder [Unknown]
  - Condition aggravated [Unknown]
  - Inflammation [Unknown]
  - Gait disturbance [Unknown]
  - Intervertebral disc degeneration [Unknown]
  - Exostosis [Unknown]
  - Burning sensation [Recovered/Resolved]
  - Alopecia [Unknown]
  - Sensitivity to weather change [Unknown]
  - Depressed mood [Unknown]
  - Depression [Unknown]
  - Discouragement [Unknown]
  - Tendon rupture [Unknown]
  - Contusion [Unknown]

NARRATIVE: CASE EVENT DATE: 20220101
